FAERS Safety Report 17674210 (Version 2)
Quarter: 2020Q2

REPORT INFORMATION
  Report Type: Other
  Country: IT (occurrence: IT)
  Receive Date: 20200416
  Receipt Date: 20200417
  Transmission Date: 20200714
  Serious: Yes (Life-Threatening, Hospitalization)
  Sender: FDA-Public Use
  Company Number: IT-CELLTRION INC.-2020IT021595

PATIENT

DRUGS (2)
  1. RITUXIMAB (UNKNOWN) [Suspect]
     Active Substance: RITUXIMAB
     Indication: WALDENSTROM^S MACROGLOBULINAEMIA
     Dosage: 600 MG, CYCLIC
     Route: 042
     Dates: start: 20191202, end: 20191223
  2. BENDAMUSTINE HYDROCHLORIDE. [Suspect]
     Active Substance: BENDAMUSTINE HYDROCHLORIDE
     Indication: WALDENSTROM^S MACROGLOBULINAEMIA
     Dosage: 110 MG, CYCLIC
     Route: 042
     Dates: start: 20191126, end: 20191224

REACTIONS (6)
  - Product use in unapproved indication [Unknown]
  - Pyrexia [Recovering/Resolving]
  - Oropharyngeal candidiasis [Recovering/Resolving]
  - Neutropenia [Recovering/Resolving]
  - Oral candidiasis [Recovering/Resolving]
  - Oropharyngeal pain [Recovering/Resolving]

NARRATIVE: CASE EVENT DATE: 20200120
